FAERS Safety Report 4999180-9 (Version None)
Quarter: 2006Q2

REPORT INFORMATION
  Report Type: 
  Country: None (occurrence: None)
  Receive Date: 20060509
  Receipt Date: 20060426
  Transmission Date: 20061013
  Serious: Yes (Other)
  Sender: FDA-Public Use
  Company Number: 2006037199

PATIENT
  Age: 53 Year
  Sex: Female
  Weight: 83.9154 kg

DRUGS (26)
  1. GENOTROPIN [Suspect]
     Indication: HYPOPITUITARISM
     Dosage: 0.8 MG (0.8 MG, DAILY), SUBCUTANEOUS
     Route: 058
     Dates: start: 19991213
  2. AVANDAMET (METFORMIN HYDROCHLORIDE, ROSIGILITAZONE) [Concomitant]
  3. GLUCOPHAGE [Concomitant]
  4. CELEBREX [Concomitant]
  5. LEVOTHROID [Concomitant]
  6. DARVOCET [Concomitant]
  7. ROBAXIN [Concomitant]
  8. ATIVAN [Concomitant]
  9. IMIPRAMINE [Concomitant]
  10. CYMBALTA [Concomitant]
  11. HCT ^ISIS^ (HYDROCHLOROTHIAZIDE) [Concomitant]
  12. TOPROL-XL [Concomitant]
  13. VITAMINS [Concomitant]
  14. VALTREX [Concomitant]
  15. LOPERAMIDE [Concomitant]
  16. AVANDIA [Concomitant]
  17. METFORMIN [Concomitant]
  18. BENADRYL [Concomitant]
  19. ACCUPRIL [Concomitant]
  20. NEXIUM [Concomitant]
  21. BEXTRA [Concomitant]
  22. LOPROX (CICLOPIROX OLAMINE) [Concomitant]
  23. ASPIRIN [Concomitant]
  24. PRANDIN [Concomitant]
  25. LEXAPRO [Concomitant]
  26. VITAMIN B-12 [Concomitant]

REACTIONS (7)
  - ASTHMA [None]
  - BURSITIS [None]
  - FIBROMYALGIA [None]
  - MEMORY IMPAIRMENT [None]
  - TENDONITIS [None]
  - TYPE II HYPERLIPIDAEMIA [None]
  - VITAMIN B12 DECREASED [None]
